FAERS Safety Report 24890713 (Version 2)
Quarter: 2025Q1

REPORT INFORMATION
  Report Type: Spontaneous
  Country: RU (occurrence: RU)
  Receive Date: 20250127
  Receipt Date: 20250217
  Transmission Date: 20250409
  Serious: Yes (Hospitalization)
  Sender: IPSEN BIOPHARMACEUTICALS, INC.
  Company Number: RU-IPSEN Group, Research and Development-2025-01567

PATIENT
  Age: 13 Year
  Sex: Female

DRUGS (2)
  1. SOHONOS [Suspect]
     Active Substance: PALOVAROTENE
     Indication: Fibrodysplasia ossificans progressiva
     Dosage: 3 MG PER DAY
     Route: 048
     Dates: start: 20241206
  2. SOHONOS [Suspect]
     Active Substance: PALOVAROTENE
     Route: 048

REACTIONS (1)
  - Vomiting [Unknown]
